FAERS Safety Report 10132281 (Version 1)
Quarter: 2014Q2

REPORT INFORMATION
  Report Type: Spontaneous
  Country: GB (occurrence: GB)
  Receive Date: 20140428
  Receipt Date: 20140428
  Transmission Date: 20141212
  Serious: Yes (Hospitalization)
  Sender: FDA-Public Use
  Company Number: GB-TEVA-477423ISR

PATIENT
  Sex: Male
  Weight: 129 kg

DRUGS (3)
  1. METFORMIN [Suspect]
     Indication: TYPE 2 DIABETES MELLITUS
     Dosage: 2 G (NOS)
     Route: 065
  2. VICTOZA [Suspect]
     Indication: TYPE 2 DIABETES MELLITUS
     Dosage: 1.2 MILLIGRAM DAILY; 1.2 MG, QD
     Route: 065
     Dates: start: 20120303, end: 20140328
  3. VICTOZA [Suspect]
     Dosage: .6 MILLIGRAM DAILY; 0.6 MG, QD
     Route: 065
     Dates: start: 20120303, end: 201203

REACTIONS (5)
  - Pneumonia [Unknown]
  - Cardiac disorder [Unknown]
  - Alanine aminotransferase increased [Unknown]
  - Hypoglycaemia [Unknown]
  - Blood glucose increased [Unknown]
